FAERS Safety Report 7771849-2 (Version None)
Quarter: 2011Q3

REPORT INFORMATION
  Report Type: 
  Country: None (occurrence: None)
  Receive Date: 20110922
  Receipt Date: 20110418
  Transmission Date: 20111222
  Serious: No
  Sender: FDA-Public Use
  Company Number: US-ASTRAZENECA-2007UW04311

PATIENT
  Age: 46 Year
  Sex: Male
  Weight: 145.1 kg

DRUGS (3)
  1. HALDOL [Concomitant]
     Dates: start: 20060725
  2. SEROQUEL [Suspect]
     Indication: DEPRESSION
     Route: 048
     Dates: start: 20040826, end: 20060203
  3. GEODON [Concomitant]
     Dates: start: 20060601

REACTIONS (6)
  - TYPE 2 DIABETES MELLITUS [None]
  - OBESITY [None]
  - BLOOD CHOLESTEROL INCREASED [None]
  - INTERVERTEBRAL DISC DISORDER [None]
  - BLOOD TRIGLYCERIDES INCREASED [None]
  - HYPERLIPIDAEMIA [None]
